FAERS Safety Report 9375458 (Version 2)
Quarter: 2013Q3

REPORT INFORMATION
  Report Type: Report from Study
  Country: IT (occurrence: IT)
  Receive Date: 20130628
  Receipt Date: 20130718
  Transmission Date: 20140515
  Serious: Yes (Disabling)
  Sender: FDA-Public Use
  Company Number: IT-GLAXOSMITHKLINE-B0901312A

PATIENT
  Age: 65 Year
  Sex: Female

DRUGS (3)
  1. DABRAFENIB [Suspect]
     Indication: METASTATIC MALIGNANT MELANOMA
     Dosage: 150MG TWICE PER DAY
     Route: 048
     Dates: start: 20130503
  2. CARDIOASPIRIN [Concomitant]
     Dosage: 80MG PER DAY
     Route: 048
  3. METHYLPREDNISONE [Concomitant]
     Indication: AMAUROSIS
     Dosage: 50MG PER DAY
     Route: 048

REACTIONS (2)
  - Visual acuity reduced [Not Recovered/Not Resolved]
  - Visual acuity reduced [Not Recovered/Not Resolved]
